FAERS Safety Report 7813691-X (Version None)
Quarter: 2011Q4

REPORT INFORMATION
  Report Type: 
  Country: None (occurrence: None)
  Receive Date: 20111014
  Receipt Date: 20111003
  Transmission Date: 20120403
  Serious: Yes (Hospitalization)
  Sender: FDA-Public Use
  Company Number: US-ELI_LILLY_AND_COMPANY-US200910002126

PATIENT
  Sex: Female

DRUGS (10)
  1. FOSAMAX [Concomitant]
     Dosage: UNK, WEEKLY (1/W)
  2. FORTEO [Suspect]
     Dosage: 20 UG, DAILY (1/D)
  3. FORTEO [Suspect]
     Indication: OSTEOPOROSIS
     Dosage: 20 UG, DAILY (1/D)
  4. FORTEO [Suspect]
     Dosage: 20 UG, DAILY (1/D)
  5. FORTEO [Suspect]
     Dosage: 20 UG, QD
     Dates: end: 20110101
  6. FORTEO [Suspect]
     Dosage: 20 UG, QD
     Dates: start: 20110919
  7. ASPIRIN [Concomitant]
     Dosage: UNK, QD
  8. LEVOTHYROXINE SODIUM [Concomitant]
     Dosage: 50 MG, QD
  9. FORTEO [Suspect]
     Dosage: 20 UG, DAILY (1/D)
  10. VITAMIN TAB [Concomitant]

REACTIONS (3)
  - HIP FRACTURE [None]
  - FALL [None]
  - CONSTIPATION [None]
